FAERS Safety Report 24445573 (Version 2)
Quarter: 2024Q4

REPORT INFORMATION
  Report Type: Spontaneous
  Country: IT (occurrence: IT)
  Receive Date: 20241016
  Receipt Date: 20241018
  Transmission Date: 20250115
  Serious: Yes (Death, Disabling, Other)
  Sender: BAYER HEALTHCARE PHARMACEUTICALS INC.
  Company Number: IT-BAYER-2024A146320

PATIENT
  Age: 22 Year
  Sex: Male

DRUGS (2)
  1. CIPROFLOXACIN [Suspect]
     Active Substance: CIPROFLOXACIN
     Indication: Cystitis
     Dosage: 6 DF
     Route: 048
     Dates: start: 202408
  2. CIPROFLOXACIN [Suspect]
     Active Substance: CIPROFLOXACIN
     Indication: Cystitis
     Dosage: 1 DF, QD

REACTIONS (15)
  - Completed suicide [Fatal]
  - Insomnia [None]
  - Mental disorder [None]
  - Myalgia [None]
  - Panic attack [None]
  - Asthenia [None]
  - Dysuria [None]
  - Malaise [None]
  - Malaise [Recovered/Resolved]
  - Tremor [Recovered/Resolved]
  - Malaise [None]
  - Tremor [None]
  - Anxiety [None]
  - Abdominal pain upper [None]
  - Vomiting [None]

NARRATIVE: CASE EVENT DATE: 20240808
